FAERS Safety Report 10352072 (Version 2)
Quarter: 2014Q3

REPORT INFORMATION
  Report Type: Spontaneous
  Country: US (occurrence: US)
  Receive Date: 20140730
  Receipt Date: 20140730
  Transmission Date: 20150326
  Serious: No
  Sender: FDA-Public Use
  Company Number: US-ABBVIE-13P-163-1077311-00

PATIENT
  Age: 45 Year
  Sex: Female
  Weight: 88.98 kg

DRUGS (2)
  1. SYNTHROID [Suspect]
     Active Substance: LEVOTHYROXINE SODIUM
     Indication: HYPOTHYROIDISM
     Route: 048
     Dates: start: 20130410
  2. SYNTHROID [Suspect]
     Active Substance: LEVOTHYROXINE SODIUM
     Indication: HYPOTHYROIDISM
     Route: 048
     Dates: start: 20130410

REACTIONS (9)
  - Pharyngeal oedema [Not Recovered/Not Resolved]
  - Flushing [Unknown]
  - Throat irritation [Not Recovered/Not Resolved]
  - Cardiac disorder [Unknown]
  - Product quality issue [Unknown]
  - Drug ineffective [Unknown]
  - Weight increased [Unknown]
  - Fluid retention [Not Recovered/Not Resolved]
  - Urticaria [Unknown]

NARRATIVE: CASE EVENT DATE: 2011
